FAERS Safety Report 18807280 (Version 1)
Quarter: 2021Q1

REPORT INFORMATION
  Report Type: Spontaneous
  Country: CA (occurrence: CA)
  Receive Date: 20210128
  Receipt Date: 20210128
  Transmission Date: 20210419
  Serious: Yes (Hospitalization)
  Sender: FDA-Public Use
  Company Number: CA-TEVA-2021-CA-1871715

PATIENT
  Age: 3 Year
  Sex: Male

DRUGS (2)
  1. VINCRISTINE SULPHATE INJECTION?LIQ IV 1MG/ML [Suspect]
     Active Substance: VINCRISTINE SULFATE
     Route: 065
  2. PMS DEXAMETHASONE TAB 4MG [Suspect]
     Active Substance: DEXAMETHASONE
     Route: 065

REACTIONS (1)
  - Febrile neutropenia [Recovered/Resolved]
